FAERS Safety Report 23323005 (Version 1)
Quarter: 2023Q4

REPORT INFORMATION
  Report Type: Spontaneous
  Country: US (occurrence: None)
  Receive Date: 20231220
  Receipt Date: 20231220
  Transmission Date: 20240109
  Serious: No
  Sender: FDA-Public Use
  Company Number: US-ROCHE-3285120

PATIENT
  Sex: Female
  Weight: 118.95 kg

DRUGS (1)
  1. RITUXAN [Suspect]
     Active Substance: RITUXIMAB
     Indication: Dermatomyositis
     Route: 042
     Dates: start: 201905

REACTIONS (5)
  - Wound haemorrhage [Not Recovered/Not Resolved]
  - Off label use [Unknown]
  - Skin lesion [Unknown]
  - Anal pruritus [Unknown]
  - Anorectal discomfort [Unknown]

NARRATIVE: CASE EVENT DATE: 20190501
